FAERS Safety Report 17001565 (Version 2)
Quarter: 2019Q4

REPORT INFORMATION
  Report Type: Spontaneous
  Country: JP (occurrence: JP)
  Receive Date: 20191106
  Receipt Date: 20191115
  Transmission Date: 20200122
  Serious: Yes (Death, Hospitalization, Other)
  Sender: FDA-Public Use
  Company Number: CN-ASTRAZENECA-2019SF53218

PATIENT
  Age: 58 Year
  Sex: Female

DRUGS (6)
  1. GEMCITABINE. [Concomitant]
     Active Substance: GEMCITABINE
     Indication: CHEMOTHERAPY
     Dates: start: 201208
  2. DOCETAXEL. [Concomitant]
     Active Substance: DOCETAXEL
     Dates: start: 2010
  3. GEFITINIB. [Suspect]
     Active Substance: GEFITINIB
     Indication: NON-SMALL CELL LUNG CANCER
     Route: 048
     Dates: start: 201205
  4. GEFITINIB. [Suspect]
     Active Substance: GEFITINIB
     Indication: NON-SMALL CELL LUNG CANCER
     Route: 048
     Dates: start: 200211
  5. PEMETREXED. [Concomitant]
     Active Substance: PEMETREXED
     Indication: CHEMOTHERAPY
     Dates: start: 201201
  6. VINORELBINE [Concomitant]
     Active Substance: VINORELBINE TARTRATE
     Indication: CHEMOTHERAPY
     Dates: start: 201212

REACTIONS (13)
  - Drug resistance [Fatal]
  - Metastases to lung [Fatal]
  - Metastases to liver [Unknown]
  - Malignant transformation [Unknown]
  - Neuroendocrine tumour of the lung [Unknown]
  - Metastases to pleura [Unknown]
  - Metastases to central nervous system [Unknown]
  - Pneumonia bacterial [Fatal]
  - Metastases to adrenals [Unknown]
  - Metastases to peritoneum [Unknown]
  - Malignant neoplasm progression [Fatal]
  - Metastases to lymph nodes [Unknown]
  - Metastases to heart [Unknown]

NARRATIVE: CASE EVENT DATE: 2004
